FAERS Safety Report 7915052 (Version 2)
Quarter: 2013Q2

REPORT INFORMATION
  Report Type: Spontaneous
  Country: FR (occurrence: FR)
  Receive Date: 20110426
  Receipt Date: 20130618
  Transmission Date: 20140414
  Serious: Yes (Hospitalization, Other)
  Sender: FDA-Public Use
  Company Number: FR-PFIZER INC-2011084985

PATIENT
  Age: 85 Year
  Sex: Female

DRUGS (7)
  1. LYRICA [Suspect]
     Indication: NEUROPATHY PERIPHERAL
     Dosage: 75 MG, 2X/DAY
     Route: 048
     Dates: start: 20110315, end: 20110324
  2. INEXIUM [Concomitant]
     Dosage: 40 MG, 1X/DAY
     Route: 048
  3. ASPIRINE [Concomitant]
     Dosage: 75 MG, 1X/DAY
     Route: 048
  4. CELLCEPT [Concomitant]
     Dosage: 500MG PER DAY
     Route: 048
     Dates: start: 20110324
  5. DIFFU K [Concomitant]
     Dosage: UNK
     Route: 048
     Dates: start: 20110323
  6. SOLU-MEDROL [Concomitant]
     Dosage: UNK
     Dates: start: 20110323
  7. AUGMENTIN [Concomitant]
     Dosage: 1 G, 3X/DAY
     Dates: start: 20110323

REACTIONS (3)
  - Blindness [Recovered/Resolved with Sequelae]
  - Facial pain [Recovered/Resolved]
  - Optic neuropathy [Unknown]
